FAERS Safety Report 11946757 (Version 2)
Quarter: 2016Q1

REPORT INFORMATION
  Report Type: Spontaneous
  Country: PR (occurrence: PR)
  Receive Date: 20160125
  Receipt Date: 20160201
  Transmission Date: 20160526
  Serious: No
  Sender: FDA-Public Use
  Company Number: PR-ABBVIE-15K-131-1396197-00

PATIENT
  Age: 67 Year
  Sex: Female
  Weight: 65.83 kg

DRUGS (16)
  1. METHOTREXATE [Concomitant]
     Active Substance: METHOTREXATE
     Indication: PSORIATIC ARTHROPATHY
     Route: 048
  2. HUMIRA [Suspect]
     Active Substance: ADALIMUMAB
     Indication: PSORIATIC ARTHROPATHY
     Route: 058
  3. ZOLOFT [Concomitant]
     Active Substance: SERTRALINE HYDROCHLORIDE
     Indication: CARDIAC DISORDER
     Route: 048
  4. VITAMIN D [Concomitant]
     Active Substance: CHOLECALCIFEROL
     Indication: VITAMIN SUPPLEMENTATION
     Dosage: 2000
     Route: 048
  5. BONIVA [Concomitant]
     Active Substance: IBANDRONATE SODIUM
     Indication: VITAMIN SUPPLEMENTATION
     Route: 048
  6. ULTRACET [Concomitant]
     Active Substance: ACETAMINOPHEN\TRAMADOL HYDROCHLORIDE
     Indication: PAIN
     Route: 048
  7. BIOTIN [Concomitant]
     Active Substance: BIOTIN
     Indication: NAIL GROWTH ABNORMAL
     Route: 048
  8. XARELTO [Concomitant]
     Active Substance: RIVAROXABAN
     Indication: COAGULOPATHY
     Route: 048
  9. SYNTHROID [Concomitant]
     Active Substance: LEVOTHYROXINE SODIUM
     Indication: THYROID DISORDER
     Route: 048
  10. BUSPAR [Concomitant]
     Active Substance: BUSPIRONE HYDROCHLORIDE
     Indication: DEPRESSION
     Route: 048
  11. AVAPRO [Concomitant]
     Active Substance: IRBESARTAN
     Indication: CARDIAC DISORDER
     Route: 048
  12. VITAMIN C [Concomitant]
     Active Substance: ASCORBIC ACID
     Indication: VITAMIN SUPPLEMENTATION
     Route: 048
  13. FOLIC ACID. [Concomitant]
     Active Substance: FOLIC ACID
     Indication: VITAMIN SUPPLEMENTATION
     Route: 048
  14. BIOTIN [Concomitant]
     Active Substance: BIOTIN
     Indication: HAIR GROWTH ABNORMAL
  15. COREG [Concomitant]
     Active Substance: CARVEDILOL
     Indication: CARDIAC DISORDER
     Route: 048
  16. NEURONTIN [Concomitant]
     Active Substance: GABAPENTIN
     Indication: NEUROPATHY PERIPHERAL
     Route: 048

REACTIONS (1)
  - Rash macular [Not Recovered/Not Resolved]

NARRATIVE: CASE EVENT DATE: 201406
